FAERS Safety Report 14052453 (Version 1)
Quarter: 2017Q4

REPORT INFORMATION
  Report Type: Spontaneous
  Country: US (occurrence: US)
  Receive Date: 20171005
  Receipt Date: 20171005
  Transmission Date: 20180321
  Serious: No
  Sender: FDA-Public Use
  Company Number: US-JNJFOC-20170713426

PATIENT
  Age: 76 Year
  Sex: Female
  Weight: 54.89 kg

DRUGS (3)
  1. IMODIUM MULTI-SYMPTOM RELIEF [Suspect]
     Active Substance: DIMETHICONE\LOPERAMIDE HYDROCHLORIDE
     Indication: ANTIDIARRHOEAL SUPPORTIVE CARE
     Dosage: 2 CAPLETS THEN 1 CAPLET IF NEEDED NO MORE 4 DAY
     Route: 048
     Dates: start: 20170716
  2. CHOLESTYRAMINE. [Concomitant]
     Active Substance: CHOLESTYRAMINE
     Indication: DIARRHOEA
     Route: 065
  3. IMODIUM MULTI-SYMPTOM RELIEF [Suspect]
     Active Substance: DIMETHICONE\LOPERAMIDE HYDROCHLORIDE
     Indication: PROPHYLAXIS
     Dosage: 2 CAPLETS THEN 1 CAPLET IF NEEDED NO MORE 4 DAY
     Route: 048
     Dates: start: 20170716

REACTIONS (2)
  - Product use complaint [Unknown]
  - Product size issue [Unknown]
